FAERS Safety Report 24748892 (Version 4)
Quarter: 2025Q1

REPORT INFORMATION
  Report Type: Report from Study
  Country: US (occurrence: US)
  Receive Date: 20241218
  Receipt Date: 20250327
  Transmission Date: 20250409
  Serious: Yes (Hospitalization)
  Sender: UCB
  Company Number: US-UCBSA-2024063323

PATIENT
  Sex: Female
  Weight: 45.36 kg

DRUGS (1)
  1. ZILUCOPLAN [Suspect]
     Active Substance: ZILUCOPLAN
     Indication: Myasthenia gravis
     Dosage: 16.6 MILLIGRAM, ONCE DAILY (QD)
     Route: 058
     Dates: start: 20241120

REACTIONS (5)
  - Myasthenia gravis [Unknown]
  - Dysphagia [Unknown]
  - Abdominal discomfort [Unknown]
  - Therapeutic procedure [Not Recovered/Not Resolved]
  - Drug ineffective [Unknown]

NARRATIVE: CASE EVENT DATE: 20240101
